FAERS Safety Report 21298502 (Version 2)
Quarter: 2022Q4

REPORT INFORMATION
  Report Type: Report from Study
  Country: MX (occurrence: MX)
  Receive Date: 20220906
  Receipt Date: 20221006
  Transmission Date: 20230113
  Serious: Yes (Hospitalization, Other)
  Sender: FDA-Public Use
  Company Number: MX-BAYER-2022A123730

PATIENT
  Age: 68 Year
  Sex: Female

DRUGS (2)
  1. NEXAVAR [Suspect]
     Active Substance: SORAFENIB
     Indication: Hepatocellular carcinoma
     Dosage: UNK
     Route: 048
     Dates: start: 20211101
  2. NEXAVAR [Suspect]
     Active Substance: SORAFENIB
     Indication: Hepatocellular carcinoma
     Dosage: 600 MG 400 MG AND AT 12 HOURS 200 MG
     Route: 048
     Dates: end: 20220826

REACTIONS (3)
  - Haematochezia [Recovered/Resolved]
  - Gingival bleeding [Recovered/Resolved]
  - Transfusion [None]

NARRATIVE: CASE EVENT DATE: 20220823
